FAERS Safety Report 6565679-7 (Version None)
Quarter: 2010Q1

REPORT INFORMATION
  Report Type: 
  Country: None (occurrence: None)
  Receive Date: 20100126
  Receipt Date: 20100111
  Transmission Date: 20100710
  Serious: Yes (Disabling)
  Sender: FDA-Public Use
  Company Number: 2009-5200

PATIENT
  Age: 60 Year
  Sex: Female
  Weight: 65.8 kg

DRUGS (1)
  1. DYSPORT [Suspect]
     Indication: SKIN WRINKLING
     Dosage: 50 UNITS, SINGLE CYCLE, (INTRADERMAL)
     Route: 023
     Dates: start: 20091214, end: 20091214

REACTIONS (6)
  - ARTHRALGIA [None]
  - BACK PAIN [None]
  - FACIAL PALSY [None]
  - FACIAL PARESIS [None]
  - MOVEMENT DISORDER [None]
  - PAIN IN EXTREMITY [None]
